FAERS Safety Report 7025132-3 (Version None)
Quarter: 2010Q4

REPORT INFORMATION
  Report Type: 
  Country: None (occurrence: None)
  Receive Date: 20101001
  Receipt Date: 20100922
  Transmission Date: 20110411
  Serious: Yes (Hospitalization, Other)
  Sender: FDA-Public Use
  Company Number: CN-PFIZER INC-2008046352

PATIENT
  Age: 5 Year
  Sex: Male

DRUGS (3)
  1. ZITHROMAX [Suspect]
     Indication: NASOPHARYNGITIS
     Dosage: 0.25 G, 1X/DAY
     Route: 042
     Dates: start: 20071204, end: 20071206
  2. ZITHROMAX [Suspect]
     Indication: PYREXIA
  3. GLUCOSE INJECTION [Concomitant]
     Dosage: UNK
     Route: 042
     Dates: end: 20071201

REACTIONS (3)
  - ASTHENIA [None]
  - DECREASED APPETITE [None]
  - LIVER FUNCTION TEST ABNORMAL [None]
